FAERS Safety Report 5637704-9 (Version None)
Quarter: 2008Q1

REPORT INFORMATION
  Report Type: 
  Country: None (occurrence: None)
  Receive Date: 20080219
  Receipt Date: 20080204
  Transmission Date: 20080703
  Serious: Yes (Death)
  Sender: FDA-Public Use
  Company Number: 2008-01232

PATIENT
  Age: 34 Year
  Sex: Male

DRUGS (6)
  1. METHYLPHYENIDATE HCL [Suspect]
  2. DEXTROAMPHETAMINE SAC/SLF, AMPHETAMINE ASP/SLF 5 (MIXED SALTS)(WATSON) [Suspect]
  3. BUPROPION HYDROCHLORIDE [Suspect]
  4. PROPOXYPHENE HYDROCHLORIDE W/ACETAMINOPHEN TAB [Suspect]
  5. BENZODIAZEPINE DERIVATIVES [Suspect]
  6. ETHANOL(ETHANOL) [Suspect]

REACTIONS (1)
  - DEATH [None]
